FAERS Safety Report 8817731 (Version 2)
Quarter: 2013Q2

REPORT INFORMATION
  Report Type: Spontaneous
  Country: US (occurrence: US)
  Receive Date: 20121001
  Receipt Date: 20130624
  Transmission Date: 20140414
  Serious: Yes (Other)
  Sender: FDA-Public Use
  Company Number: US-PFIZER INC-2012240171

PATIENT
  Sex: Female

DRUGS (2)
  1. CELEBREX [Suspect]
     Dosage: 200 MG, 2X/DAY
  2. LYRICA [Suspect]
     Dosage: 75 MG, 3X/DAY

REACTIONS (3)
  - Arthropathy [Unknown]
  - Pain [Unknown]
  - Tooth disorder [Unknown]
